FAERS Safety Report 7176274-3 (Version None)
Quarter: 2010Q4

REPORT INFORMATION
  Report Type: 
  Country: None (occurrence: None)
  Receive Date: 20101220
  Receipt Date: 20101214
  Transmission Date: 20110411
  Serious: Yes (Hospitalization)
  Sender: FDA-Public Use
  Company Number: ES-SP-2010-07012

PATIENT
  Age: 65 Year

DRUGS (1)
  1. BCG  THERAPEUTICS [Suspect]
     Indication: BLADDER NEOPLASM
     Dosage: NOT REPORTED
     Route: 043

REACTIONS (4)
  - LOSS OF CONSCIOUSNESS [None]
  - OLIGURIA [None]
  - PYREXIA [None]
  - SEPSIS [None]
